FAERS Safety Report 4741565-X (Version None)
Quarter: 2005Q3

REPORT INFORMATION
  Report Type: 
  Country: None (occurrence: None)
  Receive Date: 20050808
  Receipt Date: 20050726
  Transmission Date: 20060218
  Serious: Yes (Hospitalization)
  Sender: FDA-Public Use
  Company Number: EWC050745163

PATIENT
  Sex: Male
  Weight: 65 kg

DRUGS (4)
  1. FORTEO [Suspect]
     Indication: OSTEOPOROSIS
     Dosage: 20 UG DAY
     Dates: start: 20040322, end: 20050712
  2. IMDUR [Concomitant]
  3. NORVASC [Concomitant]
  4. CENTYL MITE W/POTASSIUM CHLORIDE [Concomitant]

REACTIONS (2)
  - DIARRHOEA [None]
  - MEDULLARY THYROID CANCER [None]
